FAERS Safety Report 12678406 (Version 1)
Quarter: 2016Q3

REPORT INFORMATION
  Report Type: Spontaneous
  Country: DK (occurrence: DK)
  Receive Date: 20160823
  Receipt Date: 20160823
  Transmission Date: 20161109
  Serious: Yes (Hospitalization, Other)
  Sender: FDA-Public Use
  Company Number: DK-ELI_LILLY_AND_COMPANY-DK201608009329

PATIENT
  Age: 62 Year
  Sex: Female

DRUGS (3)
  1. ZYPREXA [Suspect]
     Active Substance: OLANZAPINE
     Indication: BIPOLAR I DISORDER
  2. LITHIUM. [Suspect]
     Active Substance: LITHIUM
     Indication: BIPOLAR DISORDER
     Dosage: UNK UNK, UNKNOWN
     Route: 065
     Dates: start: 1978, end: 2005
  3. ZYPREXA [Suspect]
     Active Substance: OLANZAPINE
     Indication: BIPOLAR DISORDER
     Dosage: UNK
     Dates: start: 2005, end: 201208

REACTIONS (14)
  - Renal impairment [Unknown]
  - Back pain [Unknown]
  - Hyponatraemia [Unknown]
  - Fall [Unknown]
  - Nephropathy [Unknown]
  - Toxicity to various agents [Unknown]
  - Balance disorder [Unknown]
  - Fall [Unknown]
  - Atrial fibrillation [Unknown]
  - Pericarditis [Unknown]
  - Dyspnoea [Unknown]
  - Diplegia [Not Recovered/Not Resolved]
  - Rhabdomyolysis [Unknown]
  - Chest pain [Unknown]

NARRATIVE: CASE EVENT DATE: 20120821
